FAERS Safety Report 4608762-5 (Version None)
Quarter: 2005Q1

REPORT INFORMATION
  Report Type: 
  Country: None (occurrence: None)
  Receive Date: 20050315
  Receipt Date: 20050303
  Transmission Date: 20050727
  Serious: Yes (Hospitalization)
  Sender: FDA-Public Use
  Company Number: FR-SANOFI-SYNTHELABO-A02200500577

PATIENT
  Age: 89 Year
  Sex: Male

DRUGS (5)
  1. DANATROL [Suspect]
     Indication: IDIOPATHIC THROMBOCYTOPENIC PURPURA
     Dosage: 600 MG
     Route: 048
     Dates: start: 20040318, end: 20040611
  2. POLYKARAYA [Suspect]
     Indication: DRUG USE FOR UNKNOWN INDICATION
     Dosage: 12 G
     Route: 048
     Dates: end: 20040611
  3. DIFFU K [Suspect]
     Indication: DRUG USE FOR UNKNOWN INDICATION
     Dosage: 1800 MG
     Route: 048
     Dates: end: 20040612
  4. RABEPRAZOLE SODIUM [Concomitant]
     Route: 048
     Dates: end: 20040623
  5. DIAFUSOR [Concomitant]
     Route: 062
     Dates: end: 20040622

REACTIONS (2)
  - DERMATITIS EXFOLIATIVE [None]
  - TOXIC SKIN ERUPTION [None]
